FAERS Safety Report 21970973 (Version 1)
Quarter: 2023Q1

REPORT INFORMATION
  Report Type: Spontaneous
  Country: US (occurrence: US)
  Receive Date: 20230209
  Receipt Date: 20230209
  Transmission Date: 20230418
  Serious: No
  Sender: FDA-Public Use
  Company Number: US-ABBVIE-4262171

PATIENT
  Sex: Male

DRUGS (1)
  1. SKYRIZI [Suspect]
     Active Substance: RISANKIZUMAB-RZAA
     Indication: Psoriasis
     Dosage: DRUG START DATE MAR 2022 OR APR 2022
     Route: 058

REACTIONS (3)
  - Pain [Not Recovered/Not Resolved]
  - Chills [Unknown]
  - Pyrexia [Unknown]
